FAERS Safety Report 23118984 (Version 1)
Quarter: 2023Q4

REPORT INFORMATION
  Report Type: Spontaneous
  Country: US (occurrence: US)
  Receive Date: 20231028
  Receipt Date: 20231028
  Transmission Date: 20240109
  Serious: No
  Sender: FDA-Public Use
  Company Number: US-AMGEN-USASP2023191655

PATIENT
  Age: 72 Year
  Sex: Male

DRUGS (1)
  1. REPATHA [Suspect]
     Active Substance: EVOLOCUMAB
     Indication: Lipoprotein abnormal
     Dosage: 140 MILLIGRAM, Q2WK
     Route: 058

REACTIONS (2)
  - Drug dose omission by device [Unknown]
  - Device difficult to use [Unknown]

NARRATIVE: CASE EVENT DATE: 20231026
